FAERS Safety Report 4897372-0 (Version None)
Quarter: 2006Q1

REPORT INFORMATION
  Report Type: 
  Country: None (occurrence: None)
  Receive Date: 20060130
  Receipt Date: 20060130
  Transmission Date: 20060701
  Serious: Yes (Hospitalization)
  Sender: FDA-Public Use
  Company Number: None

PATIENT
  Age: 88 Year
  Sex: Male
  Weight: 82.6 kg

DRUGS (1)
  1. GATIFLOXACIN [Suspect]

REACTIONS (1)
  - CONVULSION [None]
